FAERS Safety Report 13792099 (Version 1)
Quarter: 2017Q3

REPORT INFORMATION
  Report Type: Spontaneous
  Country: US (occurrence: US)
  Receive Date: 20170725
  Receipt Date: 20170725
  Transmission Date: 20171127
  Serious: No
  Sender: FDA-Public Use
  Company Number: US-ROCHE-1406692

PATIENT
  Sex: Female

DRUGS (8)
  1. AUGMENTIN [Concomitant]
     Active Substance: AMOXICILLIN\CLAVULANATE POTASSIUM
  2. VERAPAMIL HCL [Concomitant]
     Active Substance: VERAPAMIL HYDROCHLORIDE
  3. DILAUDID [Concomitant]
     Active Substance: HYDROMORPHONE HYDROCHLORIDE
  4. TORADOL [Suspect]
     Active Substance: KETOROLAC TROMETHAMINE
     Indication: PRODUCT USED FOR UNKNOWN INDICATION
     Route: 065
  5. CALAN [Concomitant]
     Active Substance: VERAPAMIL HYDROCHLORIDE
  6. AVERTIN [Concomitant]
  7. STADOL [Concomitant]
     Active Substance: BUTORPHANOL TARTRATE
  8. CODEINE [Concomitant]
     Active Substance: CODEINE

REACTIONS (1)
  - Drug hypersensitivity [Unknown]
